FAERS Safety Report 7609903-8 (Version None)
Quarter: 2011Q3

REPORT INFORMATION
  Report Type: 
  Country: None (occurrence: None)
  Receive Date: 20110714
  Receipt Date: 20110705
  Transmission Date: 20111222
  Serious: Yes (Hospitalization, Other)
  Sender: FDA-Public Use
  Company Number: US-ELI_LILLY_AND_COMPANY-US201002003754

PATIENT
  Sex: Male
  Weight: 83.9 kg

DRUGS (7)
  1. ASPIRIN [Concomitant]
     Dosage: 81 MG, QD
  2. LIPITOR [Concomitant]
     Indication: BLOOD CHOLESTEROL INCREASED
     Dosage: UNK, DAILY (1/D)
  3. ATENOLOL [Concomitant]
     Indication: BLOOD PRESSURE INCREASED
  4. WELLBUTRIN [Concomitant]
     Dosage: 150 MG, QD
  5. BYETTA [Suspect]
     Dosage: UNK, UNKNOWN
     Route: 065
     Dates: start: 20060701, end: 20071001
  6. ANTIHYPERTENSIVES [Concomitant]
  7. PANCREASE [Concomitant]

REACTIONS (10)
  - PANCREATITIS [None]
  - PANCREATITIS ACUTE [None]
  - PANCREATITIS NECROTISING [None]
  - PANCREATITIS CHRONIC [None]
  - CHOLELITHIASIS [None]
  - INTESTINAL FISTULA [None]
  - WOUND INFECTION STAPHYLOCOCCAL [None]
  - LARGE INTESTINE PERFORATION [None]
  - ABDOMINAL ABSCESS [None]
  - WEIGHT DECREASED [None]
